FAERS Safety Report 4942375-0 (Version None)
Quarter: 2006Q1

REPORT INFORMATION
  Report Type: 
  Country: None (occurrence: None)
  Receive Date: 20060313
  Receipt Date: 20050114
  Transmission Date: 20060701
  Serious: No
  Sender: FDA-Public Use
  Company Number: US-GLAXOSMITHKLINE-A0540754A

PATIENT
  Age: 44 Year
  Sex: Male

DRUGS (1)
  1. NICORETTE [Suspect]
     Indication: DRUG USE FOR UNKNOWN INDICATION

REACTIONS (5)
  - FACIAL PAIN [None]
  - GLOSSITIS [None]
  - GLOSSODYNIA [None]
  - SKIN IRRITATION [None]
  - STOMATITIS [None]
